FAERS Safety Report 22345484 (Version 1)
Quarter: 2023Q2

REPORT INFORMATION
  Report Type: Report from Study
  Country: IT (occurrence: IT)
  Receive Date: 20230519
  Receipt Date: 20230519
  Transmission Date: 20230722
  Serious: Yes (Hospitalization, Other)
  Sender: FDA-Public Use
  Company Number: None

PATIENT
  Age: 15 Year
  Sex: Male

DRUGS (3)
  1. OXAZEPAM [Suspect]
     Active Substance: OXAZEPAM
     Indication: Product used for unknown indication
     Dosage: DOSAGE: 120 UNITS OF MEASURE:MILLIGRAM VIA: ORAL
     Route: 048
     Dates: start: 20220318
  2. TRAMADOL [Suspect]
     Active Substance: TRAMADOL
     Indication: Product used for unknown indication
     Dosage: DOSAGE: 1UNIT MEASUREMENT: GRAMS ROUTE: ORAL
     Route: 048
     Dates: start: 20220318
  3. FLUOXETINE [Concomitant]
     Active Substance: FLUOXETINE HYDROCHLORIDE
     Dosage: DOSAGE: 10 UNIT: MILLIGRAMS ROUTE: ORAL
     Route: 048

REACTIONS (3)
  - Pallor [Recovering/Resolving]
  - Somnolence [Recovering/Resolving]
  - Drug abuse [Unknown]

NARRATIVE: CASE EVENT DATE: 20220318
